FAERS Safety Report 8444323-8 (Version None)
Quarter: 2012Q2

REPORT INFORMATION
  Report Type: 
  Country: None (occurrence: None)
  Receive Date: 20120618
  Receipt Date: 20120614
  Transmission Date: 20120825
  Serious: Yes (Other)
  Sender: FDA-Public Use
  Company Number: JP-BRACCO-005979

PATIENT
  Age: 65 Year
  Sex: Female

DRUGS (2)
  1. IOPAMIDOL-370 [Suspect]
     Indication: COMPUTERISED TOMOGRAM
     Route: 042
     Dates: start: 20120531, end: 20120531
  2. IOPAMIDOL-370 [Suspect]
     Indication: BLADDER CANCER
     Route: 042
     Dates: start: 20120531, end: 20120531

REACTIONS (2)
  - RASH GENERALISED [None]
  - GENERALISED OEDEMA [None]
